FAERS Safety Report 26163331 (Version 1)
Quarter: 2025Q4

REPORT INFORMATION
  Report Type: Spontaneous
  Country: EU (occurrence: EU)
  Receive Date: 20251216
  Receipt Date: 20251216
  Transmission Date: 20260117
  Serious: Yes (Other)
  Sender: SANOFI AVENTIS
  Company Number: None

PATIENT
  Age: 86 Year
  Sex: Female
  Weight: 50.7 kg

DRUGS (4)
  1. LOVENOX [Suspect]
     Active Substance: ENOXAPARIN SODIUM
     Indication: Anticoagulant therapy
     Dosage: 1 DF, QD(1INJ DAILY)
     Route: 058
     Dates: start: 20251110, end: 20251121
  2. MIANSERIN HYDROCHLORIDE [Suspect]
     Active Substance: MIANSERIN HYDROCHLORIDE
     Indication: Agitation
     Dosage: 20 MG, TOTAL(1TABLET MORNING AND EVENING)
     Route: 048
     Dates: start: 20251114, end: 20251120
  3. OXAZEPAM [Suspect]
     Active Substance: OXAZEPAM
     Indication: Anxiety
     Dosage: 1 DF, QD(1 TABLET 3 TIMES DAILY IF NEEDED (TOOK 1 TABLET DAILY FROM THE 14TH TO THE 17TH; AND 2 TABL
     Route: 048
     Dates: start: 20251114, end: 20251117
  4. OXAZEPAM [Suspect]
     Active Substance: OXAZEPAM
     Dosage: 2 DF, QD(1 TABLET 3 TIMES DAILY IF NEEDED (TOOK 1 TABLET DAILY FROM THE 14TH TO THE 17TH; AND 2 TABL
     Route: 048
     Dates: start: 20251120, end: 20251120

REACTIONS (1)
  - Neutropenia [Not Recovered/Not Resolved]

NARRATIVE: CASE EVENT DATE: 20251119
